FAERS Safety Report 6744144-8 (Version None)
Quarter: 2010Q2

REPORT INFORMATION
  Report Type: 
  Country: None (occurrence: None)
  Receive Date: 20100527
  Receipt Date: 20100519
  Transmission Date: 20101027
  Serious: Yes (Other)
  Sender: FDA-Public Use
  Company Number: B0657459A

PATIENT
  Age: 41 Year
  Sex: Male

DRUGS (1)
  1. REQUIP CR [Suspect]
     Indication: PARKINSON'S DISEASE
     Route: 065

REACTIONS (4)
  - ABDOMINAL PAIN UPPER [None]
  - CONSTIPATION [None]
  - DRUG INEFFECTIVE [None]
  - MALAISE [None]
